FAERS Safety Report 9721557 (Version 1)
Quarter: 2013Q4

REPORT INFORMATION
  Report Type: Spontaneous
  Country: JP (occurrence: JP)
  Receive Date: 20131130
  Receipt Date: 20131130
  Transmission Date: 20140711
  Serious: Yes (Other)
  Sender: FDA-Public Use
  Company Number: PHHY2013JP138748

PATIENT
  Age: 80 Year
  Sex: Male

DRUGS (2)
  1. VOLTAREN [Suspect]
     Indication: PAIN
     Dosage: UNK UKN, PRN
     Route: 048
  2. AZULFIDINE EN [Concomitant]
     Indication: ARTHRITIS

REACTIONS (1)
  - Glaucoma [Unknown]
